FAERS Safety Report 5048546-X (Version None)
Quarter: 2006Q3

REPORT INFORMATION
  Report Type: 
  Country: None (occurrence: None)
  Receive Date: 20060705
  Receipt Date: 20060619
  Transmission Date: 20061208
  Serious: Yes (Other)
  Sender: FDA-Public Use
  Company Number: DSA_28354_2006

PATIENT

DRUGS (1)
  1. RENIVACE [Suspect]
     Dosage: 15 MG ONCE PO
     Route: 048
     Dates: start: 20060613, end: 20060613

REACTIONS (3)
  - ACCIDENTAL DRUG INTAKE BY CHILD [None]
  - ACCIDENTAL OVERDOSE [None]
  - NO ADVERSE EFFECT [None]
